FAERS Safety Report 19840440 (Version 45)
Quarter: 2025Q1

REPORT INFORMATION
  Report Type: Report from Study
  Country: CA (occurrence: CA)
  Receive Date: 20210915
  Receipt Date: 20250120
  Transmission Date: 20250408
  Serious: Yes (Hospitalization, Other)
  Sender: TAKEDA
  Company Number: CA-TAKEDA-CA202031278

PATIENT
  Age: 64 Year
  Sex: Female
  Weight: 58 kg

DRUGS (38)
  1. VELAGLUCERASE ALFA [Suspect]
     Active Substance: VELAGLUCERASE ALFA
     Indication: Gaucher^s disease
     Dosage: 8 DOSAGE FORM, 2/WEEK
     Dates: start: 20101029
  2. VELAGLUCERASE ALFA [Suspect]
     Active Substance: VELAGLUCERASE ALFA
     Dosage: 8 DOSAGE FORM, Q2WEEKS
  3. VELAGLUCERASE ALFA [Suspect]
     Active Substance: VELAGLUCERASE ALFA
     Dosage: 8 DOSAGE FORM, Q2WEEKS
  4. VELAGLUCERASE ALFA [Suspect]
     Active Substance: VELAGLUCERASE ALFA
     Dosage: 8 DOSAGE FORM, Q2WEEKS
  5. VELAGLUCERASE ALFA [Suspect]
     Active Substance: VELAGLUCERASE ALFA
     Dosage: 8 DOSAGE FORM, Q2WEEKS
  6. VELAGLUCERASE ALFA [Suspect]
     Active Substance: VELAGLUCERASE ALFA
     Dosage: 8 INTERNATIONAL UNIT, Q2WEEKS
  7. VELAGLUCERASE ALFA [Suspect]
     Active Substance: VELAGLUCERASE ALFA
     Dosage: 8 DOSAGE FORM, Q2WEEKS
  8. VELAGLUCERASE ALFA [Suspect]
     Active Substance: VELAGLUCERASE ALFA
     Dosage: 8 INTERNATIONAL UNIT, Q2WEEKS
  9. VELAGLUCERASE ALFA [Suspect]
     Active Substance: VELAGLUCERASE ALFA
     Dosage: 9 DOSAGE FORM, Q2WEEKS
  10. VELAGLUCERASE ALFA [Suspect]
     Active Substance: VELAGLUCERASE ALFA
     Dosage: 9 INTERNATIONAL UNIT, Q2WEEKS
  11. VELAGLUCERASE ALFA [Suspect]
     Active Substance: VELAGLUCERASE ALFA
     Dosage: 9 DOSAGE FORM, Q2WEEKS
  12. VELAGLUCERASE ALFA [Suspect]
     Active Substance: VELAGLUCERASE ALFA
     Dosage: 9 DOSAGE FORM, Q2WEEKS
  13. VELAGLUCERASE ALFA [Suspect]
     Active Substance: VELAGLUCERASE ALFA
     Dosage: 9 INTERNATIONAL UNIT, Q2WEEKS
  14. VELAGLUCERASE ALFA [Suspect]
     Active Substance: VELAGLUCERASE ALFA
     Dosage: 3600 INTERNATIONAL UNIT, Q2WEEKS
  15. VELAGLUCERASE ALFA [Suspect]
     Active Substance: VELAGLUCERASE ALFA
     Dosage: 9 DOSAGE FORM, Q2WEEKS
  16. VELAGLUCERASE ALFA [Suspect]
     Active Substance: VELAGLUCERASE ALFA
     Dosage: 9 DOSAGE FORM, Q2WEEKS
  17. VELAGLUCERASE ALFA [Suspect]
     Active Substance: VELAGLUCERASE ALFA
     Dosage: 9 INTERNATIONAL UNIT, Q2WEEKS
  18. VELAGLUCERASE ALFA [Suspect]
     Active Substance: VELAGLUCERASE ALFA
     Dosage: 9 DOSAGE FORM, Q2WEEKS
  19. VELAGLUCERASE ALFA [Suspect]
     Active Substance: VELAGLUCERASE ALFA
     Dosage: UNK UNK, Q2WEEKS
  20. VELAGLUCERASE ALFA [Suspect]
     Active Substance: VELAGLUCERASE ALFA
     Dosage: 9 DOSAGE FORM, Q2WEEKS
  21. VELAGLUCERASE ALFA [Suspect]
     Active Substance: VELAGLUCERASE ALFA
     Dosage: 9 DOSAGE FORM, Q2WEEKS
  22. VELAGLUCERASE ALFA [Suspect]
     Active Substance: VELAGLUCERASE ALFA
     Dosage: 9 DOSAGE FORM, Q2WEEKS
  23. VELAGLUCERASE ALFA [Suspect]
     Active Substance: VELAGLUCERASE ALFA
     Dosage: 9 DOSAGE FORM, Q2WEEKS
  24. VELAGLUCERASE ALFA [Suspect]
     Active Substance: VELAGLUCERASE ALFA
     Dosage: 3600 INTERNATIONAL UNIT, Q2WEEKS
  25. VELAGLUCERASE ALFA [Suspect]
     Active Substance: VELAGLUCERASE ALFA
     Dosage: 3600 INTERNATIONAL UNIT, Q2WEEKS
  26. VELAGLUCERASE ALFA [Suspect]
     Active Substance: VELAGLUCERASE ALFA
     Dosage: 3600 INTERNATIONAL UNIT, Q2WEEKS
  27. VELAGLUCERASE ALFA [Suspect]
     Active Substance: VELAGLUCERASE ALFA
     Dosage: 3600 INTERNATIONAL UNIT, Q2WEEKS
  28. VELAGLUCERASE ALFA [Suspect]
     Active Substance: VELAGLUCERASE ALFA
     Dosage: 9 DOSAGE FORM, Q2WEEKS
  29. VELAGLUCERASE ALFA [Suspect]
     Active Substance: VELAGLUCERASE ALFA
     Dosage: 9 DOSAGE FORM, Q2WEEKS
  30. VELAGLUCERASE ALFA [Suspect]
     Active Substance: VELAGLUCERASE ALFA
     Dosage: UNK UNK, Q2WEEKS
  31. VELAGLUCERASE ALFA [Suspect]
     Active Substance: VELAGLUCERASE ALFA
     Dosage: UNK UNK, Q2WEEKS
  32. VELAGLUCERASE ALFA [Suspect]
     Active Substance: VELAGLUCERASE ALFA
     Dosage: 9 INTERNATIONAL UNIT, Q2WEEKS
  33. VELAGLUCERASE ALFA [Suspect]
     Active Substance: VELAGLUCERASE ALFA
     Dosage: 9 INTERNATIONAL UNIT, Q2WEEKS
  34. VELAGLUCERASE ALFA [Suspect]
     Active Substance: VELAGLUCERASE ALFA
     Dosage: 60 INTERNATIONAL UNIT/KILOGRAM, Q2WEEKS
  35. VELAGLUCERASE ALFA [Suspect]
     Active Substance: VELAGLUCERASE ALFA
     Dosage: 3600 INTERNATIONAL UNIT, Q2WEEKS
  36. VELAGLUCERASE ALFA [Suspect]
     Active Substance: VELAGLUCERASE ALFA
     Dosage: 3600 INTERNATIONAL UNIT, Q2WEEKS
  37. VELAGLUCERASE ALFA [Suspect]
     Active Substance: VELAGLUCERASE ALFA
     Dosage: 3600 INTERNATIONAL UNIT, Q2WEEKS
  38. VELAGLUCERASE ALFA [Suspect]
     Active Substance: VELAGLUCERASE ALFA
     Dosage: 3600 MILLIGRAM, Q2WEEKS

REACTIONS (14)
  - Humerus fracture [Recovered/Resolved]
  - Fall [Recovered/Resolved]
  - Urinary tract infection [Recovered/Resolved]
  - Ankle fracture [Not Recovered/Not Resolved]
  - Nasopharyngitis [Recovering/Resolving]
  - Bone disorder [Not Recovered/Not Resolved]
  - Weight increased [Unknown]
  - Heart rate increased [Unknown]
  - Oxygen saturation abnormal [Unknown]
  - Infusion related reaction [Unknown]
  - Oxygen saturation decreased [Not Recovered/Not Resolved]
  - Sinus congestion [Recovering/Resolving]
  - Product dose omission issue [Unknown]
  - Inappropriate schedule of product administration [Unknown]

NARRATIVE: CASE EVENT DATE: 20200922
